FAERS Safety Report 6048373-0 (Version None)
Quarter: 2009Q1

REPORT INFORMATION
  Report Type: 
  Country: None (occurrence: None)
  Receive Date: 20090123
  Receipt Date: 20090119
  Transmission Date: 20090719
  Serious: Yes (Hospitalization)
  Sender: FDA-Public Use
  Company Number: FR-BRISTOL-MYERS SQUIBB COMPANY-14477699

PATIENT
  Age: 78 Year
  Sex: Female

DRUGS (5)
  1. COUMADIN [Suspect]
     Dosage: STOPPED ON 15MAY08 AND RECHALLENGED WITH 2MG ON 17MAY08.
  2. DIGITALINE NATIVELLE [Concomitant]
  3. LASILIX [Concomitant]
  4. ELISOR [Concomitant]
  5. TRIATEC [Concomitant]

REACTIONS (5)
  - ACUTE PULMONARY OEDEMA [None]
  - ATRIAL FIBRILLATION [None]
  - INTERNATIONAL NORMALISED RATIO INCREASED [None]
  - OVERDOSE [None]
  - RIGHT VENTRICULAR FAILURE [None]
